FAERS Safety Report 4542106-2 (Version None)
Quarter: 2004Q4

REPORT INFORMATION
  Report Type: 
  Country: None (occurrence: None)
  Receive Date: 20041230
  Receipt Date: 20041123
  Transmission Date: 20050328
  Serious: Yes (Hospitalization)
  Sender: FDA-Public Use
  Company Number: US-MERCK-0411USA03698

PATIENT
  Sex: Male

DRUGS (1)
  1. VIOXX [Suspect]
     Route: 048
     Dates: start: 20010105, end: 20040801

REACTIONS (3)
  - GASTRIC DISORDER [None]
  - HEART INJURY [None]
  - SPINAL VASCULAR DISORDER [None]
